FAERS Safety Report 10967064 (Version 1)
Quarter: 2015Q1

REPORT INFORMATION
  Report Type: Spontaneous
  Country: US (occurrence: None)
  Receive Date: 20150327
  Receipt Date: 20150327
  Transmission Date: 20150721
  Serious: Yes (Disabling)
  Sender: FDA-Public Use
  Company Number: None

PATIENT
  Age: 63 Year
  Sex: Female
  Weight: 77.11 kg

DRUGS (10)
  1. HYDROCODONE/ACETAMINOPHEN [Concomitant]
     Active Substance: ACETAMINOPHEN\HYDROCODONE
  2. ALLEGRA [Concomitant]
     Active Substance: FEXOFENADINE HYDROCHLORIDE
  3. CELEBREX [Concomitant]
     Active Substance: CELECOXIB
  4. LATANOPROST. [Concomitant]
     Active Substance: LATANOPROST
  5. LIDOCAINE. [Concomitant]
     Active Substance: LIDOCAINE
  6. PROLIA [Suspect]
     Active Substance: DENOSUMAB
     Indication: OSTEOPOROSIS POSTMENOPAUSAL
     Dosage: 1-SHOT EVERY 6-MO,
     Dates: start: 20131024, end: 20141114
  7. DORAZOLAMIDE [Concomitant]
  8. DONA CRYSTALLINE GLUCOSAMINE SULFATE [Concomitant]
  9. VALSARTAN AND HYDROCHLOROTHIAZIDE [Suspect]
     Active Substance: HYDROCHLOROTHIAZIDE\VALSARTAN
  10. OMEPRAZOLE. [Concomitant]
     Active Substance: OMEPRAZOLE

REACTIONS (6)
  - Arthralgia [None]
  - Back pain [None]
  - Groin pain [None]
  - Pain in extremity [None]
  - Walking aid user [None]
  - Myalgia [None]

NARRATIVE: CASE EVENT DATE: 20141114
